FAERS Safety Report 19027364 (Version 1)
Quarter: 2021Q1

REPORT INFORMATION
  Report Type: Spontaneous
  Country: CA (occurrence: CA)
  Receive Date: 20210318
  Receipt Date: 20210318
  Transmission Date: 20210420
  Serious: Yes (Death, Hospitalization)
  Sender: FDA-Public Use
  Company Number: CA-PFIZER INC-2021281627

PATIENT
  Age: 59 Year
  Sex: Male

DRUGS (5)
  1. SYNTHROID [Concomitant]
     Active Substance: LEVOTHYROXINE SODIUM
  2. CYTARABINE. [Suspect]
     Active Substance: CYTARABINE
     Indication: ACUTE MYELOID LEUKAEMIA
     Dosage: UNK
     Route: 065
  3. ASA [Concomitant]
     Active Substance: ASPIRIN
     Route: 065
  4. MICARDIS [Concomitant]
     Active Substance: TELMISARTAN
  5. IDARUBICIN HCL [Suspect]
     Active Substance: IDARUBICIN HYDROCHLORIDE
     Indication: ACUTE MYELOID LEUKAEMIA
     Dosage: UNK
     Route: 065

REACTIONS (2)
  - Pneumonia [Fatal]
  - Febrile neutropenia [Fatal]
